FAERS Safety Report 5148359-4 (Version None)
Quarter: 2006Q4

REPORT INFORMATION
  Report Type: 
  Country: None (occurrence: None)
  Receive Date: 20061106
  Receipt Date: 20061023
  Transmission Date: 20070319
  Serious: Yes (Death)
  Sender: FDA-Public Use
  Company Number: 2006130128

PATIENT
  Age: 80 Year
  Sex: Male
  Weight: 40 kg

DRUGS (6)
  1. SULPERAZON (SULBACTAM, CEFOPERAZONE) [Suspect]
     Indication: PNEUMONIA STAPHYLOCOCCAL
     Dosage: 2 GRAM (2 IN 1 D), INTRAVENOUS
     Route: 042
     Dates: start: 20061018, end: 20061024
  2. ZYVOX [Suspect]
     Indication: PNEUMONIA STAPHYLOCOCCAL
     Dosage: 1200 MG (2 IN 1 D), INTRAVENOUS
     Route: 042
     Dates: start: 20061018, end: 20061022
  3. BIAPENEM (BIAPENEM) [Concomitant]
  4. CIPROXAN (CIPROFLOXACIN HYDROCHLORIDE) [Concomitant]
  5. STRONG NEO-MINOPHAGEN C (AMINOACETIC ACID, CYSTEINE, GLYCYRRHIZIC ACID [Concomitant]
  6. ALPROSTADIL [Concomitant]

REACTIONS (4)
  - HYPERHIDROSIS [None]
  - RENAL FAILURE ACUTE [None]
  - RENAL TUBULAR NECROSIS [None]
  - THERAPY NON-RESPONDER [None]
